FAERS Safety Report 4305816-8 (Version None)
Quarter: 2004Q1

REPORT INFORMATION
  Report Type: 
  Country: None (occurrence: None)
  Receive Date: 20040226
  Receipt Date: 20040226
  Transmission Date: 20041129
  Serious: Yes (Death)
  Sender: FDA-Public Use
  Company Number: None

PATIENT
  Age: 57 Year
  Sex: Male
  Weight: 88.6 kg

DRUGS (3)
  1. CYCLOSPORINE [Suspect]
     Indication: ACUTE MYELOID LEUKAEMIA
     Dosage: 1418MG X 3 DAYS INTRAVENOUS
     Route: 042
     Dates: start: 20040130, end: 20040202
  2. CYTARABINE [Suspect]
     Dosage: 410 MG X 7 DAYS, INTRAVENOUS
     Route: 042
     Dates: start: 20040130, end: 20040206
  3. DAUNORUBICIN HCL [Suspect]
     Indication: ACUTE MYELOID LEUKAEMIA
     Dosage: 92MG X3 DAYS INTRAVENOUS
     Route: 042
     Dates: start: 20040130, end: 20040202

REACTIONS (18)
  - ABDOMINAL DISTENSION [None]
  - ARRHYTHMIA [None]
  - ASTHENIA [None]
  - ATRIAL FIBRILLATION [None]
  - BLOOD PRESSURE DECREASED [None]
  - CARDIAC FAILURE [None]
  - CARDIO-RESPIRATORY ARREST [None]
  - CORONARY ARTERY DISEASE [None]
  - DIZZINESS [None]
  - DYSPNOEA [None]
  - FLUID OVERLOAD [None]
  - LIVER FUNCTION TEST ABNORMAL [None]
  - MENTAL STATUS CHANGES [None]
  - PAIN [None]
  - PYREXIA [None]
  - RENAL IMPAIRMENT [None]
  - SEPSIS [None]
  - TACHYCARDIA [None]
